FAERS Safety Report 4423474-9 (Version None)
Quarter: 2004Q3

REPORT INFORMATION
  Report Type: 
  Country: None (occurrence: None)
  Receive Date: 20040713
  Receipt Date: 20040401
  Transmission Date: 20050211
  Serious: No
  Sender: FDA-Public Use
  Company Number: PHEH2004US03787

PATIENT
  Age: 44 Year
  Sex: Male

DRUGS (2)
  1. ELIDEL [Suspect]
     Indication: DERMATITIS
     Dosage: QD, TOPICAL
     Route: 061
     Dates: start: 20030801
  2. PROZAC [Concomitant]

REACTIONS (1)
  - MEMORY IMPAIRMENT [None]
